FAERS Safety Report 18949493 (Version 1)
Quarter: 2021Q1

REPORT INFORMATION
  Report Type: Spontaneous
  Country: US (occurrence: US)
  Receive Date: 20210227
  Receipt Date: 20210227
  Transmission Date: 20210420
  Serious: No
  Sender: FDA-Public Use
  Company Number: US-ROCHE-2589276

PATIENT
  Age: 51 Year
  Sex: Female
  Weight: 118.95 kg

DRUGS (5)
  1. PANTOPRAZOLE [Concomitant]
     Active Substance: PANTOPRAZOLE
     Route: 048
  2. LISINOPRIL. [Concomitant]
     Active Substance: LISINOPRIL
     Indication: HYPERTENSION
     Route: 048
  3. XOLAIR [Suspect]
     Active Substance: OMALIZUMAB
     Indication: ASTHMA
     Dosage: UNKNOWN
     Route: 058
     Dates: start: 20200301
  4. AMILORIDE [Concomitant]
     Active Substance: AMILORIDE
     Dosage: INDICATION: POTASSIUM DUMPING SYNDROME//2016
     Route: 048
     Dates: start: 2016
  5. BREO ELLIPTA [Concomitant]
     Active Substance: FLUTICASONE FUROATE\VILANTEROL TRIFENATATE
     Indication: ASTHMA
     Dates: end: 202004

REACTIONS (5)
  - Dyspnoea [Not Recovered/Not Resolved]
  - Abnormal dreams [Recovered/Resolved]
  - Muscle spasms [Not Recovered/Not Resolved]
  - Pruritus [Recovering/Resolving]
  - Candida infection [Recovering/Resolving]

NARRATIVE: CASE EVENT DATE: 202003
